FAERS Safety Report 8298197-9 (Version None)
Quarter: 2012Q2

REPORT INFORMATION
  Report Type: 
  Country: None (occurrence: None)
  Receive Date: 20120419
  Receipt Date: 20120306
  Transmission Date: 20120825
  Serious: No
  Sender: FDA-Public Use
  Company Number: US-BRISTOL-MYERS SQUIBB COMPANY-16441289

PATIENT
  Age: 59 Year
  Sex: Female

DRUGS (1)
  1. YERVOY [Suspect]
     Dosage: RECEIVED 3 INF

REACTIONS (2)
  - ABDOMINAL DISTENSION [None]
  - CONSTIPATION [None]
